FAERS Safety Report 20494563 (Version 1)
Quarter: 2022Q1

REPORT INFORMATION
  Report Type: Other
  Country: RU (occurrence: None)
  Receive Date: 20220221
  Receipt Date: 20220221
  Transmission Date: 20220423
  Serious: Yes (Hospitalization, Other)
  Sender: FDA-Public Use
  Company Number: RU-ROCHE-3031020

PATIENT

DRUGS (1)
  1. TOCILIZUMAB [Suspect]
     Active Substance: TOCILIZUMAB
     Indication: Still^s disease
     Dosage: BODY WEIGHT OF {30 KG AT 12 MG/KG/ADMINISTRATION, AND AT 8 MG/KG/ADMINISTRATION 1 TIME PER 2 WEEKS
     Route: 042

REACTIONS (9)
  - Neutropenia [Unknown]
  - Tuberculosis [Unknown]
  - Pneumonia [Unknown]
  - Hypersensitivity [Unknown]
  - Varicella [Unknown]
  - Transaminases increased [Unknown]
  - Hypoglycaemia [Unknown]
  - Immunoglobulins decreased [Unknown]
  - Off label use [Unknown]
